FAERS Safety Report 7380949-0 (Version None)
Quarter: 2011Q1

REPORT INFORMATION
  Report Type: 
  Country: None (occurrence: None)
  Receive Date: 20110329
  Receipt Date: 20110323
  Transmission Date: 20110831
  Serious: Yes (Life-Threatening, Hospitalization)
  Sender: FDA-Public Use
  Company Number: PHHY2011FI24614

PATIENT

DRUGS (3)
  1. LEVODOPA [Concomitant]
     Dosage: UNK UKN, UNK
  2. COMTESS [Suspect]
     Dosage: UNK UKN, UNK
  3. STALEVO 100 [Suspect]
     Dosage: UNK UKN, UNK

REACTIONS (7)
  - DEHYDRATION [None]
  - VENTRICULAR FIBRILLATION [None]
  - HYPOKALAEMIA [None]
  - ORCHITIS [None]
  - SEPSIS [None]
  - DIARRHOEA [None]
  - DRUG ADMINISTRATION ERROR [None]
